FAERS Safety Report 5020706-3 (Version None)
Quarter: 2006Q2

REPORT INFORMATION
  Report Type: 
  Country: None (occurrence: None)
  Receive Date: 20060601
  Receipt Date: 20060522
  Transmission Date: 20061013
  Serious: Yes (Life-Threatening, Disabling, Other)
  Sender: FDA-Public Use
  Company Number: 2006026008

PATIENT
  Age: 44 Year
  Sex: Female
  Weight: 132 kg

DRUGS (20)
  1. DEPO-PROVERA [Suspect]
     Indication: AMENORRHOEA
     Dosage: 150 MG (150 MG, ONE INJECTION EVERY 3 MONTHS), INTRAMUSCULAR
     Route: 030
  2. RISPERIDONE [Concomitant]
  3. EZETIMIBE (EZETIMIBE) [Concomitant]
  4. ASPIRIN [Concomitant]
  5. METFORMIN [Concomitant]
  6. RAMIPRIL [Concomitant]
  7. CARBAMAZEPINE [Concomitant]
  8. TOLTERODINE TARTRATE [Concomitant]
  9. IMDUR [Concomitant]
  10. KAPAKE (CODEINE PHOSPHATE, PARACETAMOL) [Concomitant]
  11. METFORMIN HCL [Concomitant]
  12. ACETAMINOPHEN [Concomitant]
  13. SENNA (SENNA) [Concomitant]
  14. SUDOCREM (BENZYL ALCOHOL, BENZYL BENZOATE, BENZYL CINNAMATE, LANOLIN, [Concomitant]
  15. TOLTERODINE TARTRATE (TOLTERODINE L-TARTRATE) [Concomitant]
  16. BISACODYL (BISACODYL) [Concomitant]
  17. CHLORPROMAZINE HCL [Concomitant]
  18. CLOTRIMAZOLE [Concomitant]
  19. FUROSEMIDE [Concomitant]
  20. FYBOGEL (ISPAGHULA) [Concomitant]

REACTIONS (2)
  - CEREBROVASCULAR ACCIDENT [None]
  - TRANSIENT ISCHAEMIC ATTACK [None]
